FAERS Safety Report 7229290-7 (Version None)
Quarter: 2011Q1

REPORT INFORMATION
  Report Type: 
  Country: None (occurrence: None)
  Receive Date: 20110117
  Receipt Date: 20110106
  Transmission Date: 20110831
  Serious: Yes (Death)
  Sender: FDA-Public Use
  Company Number: US-GENZYME-CLOF-1001402

PATIENT

DRUGS (5)
  1. CLOLAR [Suspect]
     Indication: ACUTE LEUKAEMIA
     Dosage: 40 MG/M2, QDX4
     Route: 042
  2. METHOTREXATE [Concomitant]
     Indication: GRAFT VERSUS HOST DISEASE
     Dosage: UNK
     Route: 065
  3. TACROLIMUS [Concomitant]
     Indication: GRAFT VERSUS HOST DISEASE
     Dosage: UNK
     Route: 065
  4. BUSULFAN [Suspect]
     Indication: ACUTE LEUKAEMIA
     Dosage: 5000 MCMOL/DAY, QDX3
     Route: 042
  5. THIOTEPA [Suspect]
     Indication: ACUTE LEUKAEMIA
     Dosage: 5 MG/KG, ONCE
     Route: 065

REACTIONS (1)
  - GRAFT VERSUS HOST DISEASE [None]
